FAERS Safety Report 21296981 (Version 2)
Quarter: 2022Q4

REPORT INFORMATION
  Report Type: Spontaneous
  Country: US (occurrence: None)
  Receive Date: 20220906
  Receipt Date: 20221101
  Transmission Date: 20230113
  Serious: No
  Sender: FDA-Public Use
  Company Number: 2022A298713

PATIENT
  Sex: Female
  Weight: 81.6 kg

DRUGS (3)
  1. SYMLIN [Suspect]
     Active Substance: PRAMLINTIDE ACETATE
     Indication: Blood glucose increased
     Dosage: 60MCG SUBCUTANEOUSLY THREE TIMES A DAY
     Route: 058
  2. SYMLIN [Suspect]
     Active Substance: PRAMLINTIDE ACETATE
     Indication: Decreased appetite
     Dosage: 60MCG SUBCUTANEOUSLY THREE TIMES A DAY
     Route: 058
  3. SYMLIN [Suspect]
     Active Substance: PRAMLINTIDE ACETATE
     Indication: Increased insulin requirement
     Dosage: 60MCG SUBCUTANEOUSLY THREE TIMES A DAY
     Route: 058

REACTIONS (5)
  - Blood glucose increased [Unknown]
  - Weight decreased [Unknown]
  - Hypoglycaemia [Recovered/Resolved]
  - Device defective [Unknown]
  - Device use issue [Unknown]
